FAERS Safety Report 7915723-7 (Version None)
Quarter: 2011Q4

REPORT INFORMATION
  Report Type: 
  Country: None (occurrence: None)
  Receive Date: 20111115
  Receipt Date: 20111107
  Transmission Date: 20120403
  Serious: Yes (Other)
  Sender: FDA-Public Use
  Company Number: JP-GLAXOSMITHKLINE-B0761910A

PATIENT
  Age: 85 Year
  Sex: Male

DRUGS (3)
  1. PANTOSIN [Concomitant]
     Route: 048
  2. DOMPERIDONE [Concomitant]
     Route: 065
  3. PAXIL [Suspect]
     Indication: MOBILITY DECREASED
     Dosage: 20MG UNKNOWN
     Route: 048

REACTIONS (2)
  - PARKINSONISM [None]
  - MUSCULOSKELETAL STIFFNESS [None]
